FAERS Safety Report 22930588 (Version 3)
Quarter: 2024Q4

REPORT INFORMATION
  Report Type: Report from Study
  Country: EG (occurrence: EG)
  Receive Date: 20230911
  Receipt Date: 20241014
  Transmission Date: 20250115
  Serious: Yes (Other)
  Sender: NOVARTIS
  Company Number: EG-002147023-NVSC2023EG195234

PATIENT
  Age: 80 Year
  Sex: Male

DRUGS (11)
  1. ENTRESTO [Suspect]
     Active Substance: SACUBITRIL\VALSARTAN
     Indication: Cardiac failure
     Dosage: 1 DOSAGE FORM, BID
     Route: 048
     Dates: start: 20230828
  2. ENTRESTO [Suspect]
     Active Substance: SACUBITRIL\VALSARTAN
     Dosage: 50 MG, BID
     Route: 048
  3. ENTRESTO [Suspect]
     Active Substance: SACUBITRIL\VALSARTAN
     Dosage: 100 MG, BID
     Route: 048
     Dates: end: 20240317
  4. ENTRESTO [Suspect]
     Active Substance: SACUBITRIL\VALSARTAN
     Dosage: 50 MG, BID
     Route: 048
     Dates: start: 20240317
  5. NICORANDIL [Concomitant]
     Active Substance: NICORANDIL
     Indication: Coronary artery insufficiency
     Dosage: 1 DOSAGE FORM, QD
     Route: 065
     Dates: start: 2022
  6. NICORANDIL [Concomitant]
     Active Substance: NICORANDIL
     Dosage: 10 MG, BID (START ON YEAR AGO)
     Route: 065
  7. VASTAREL [Concomitant]
     Active Substance: TRIMETAZIDINE DIHYDROCHLORIDE
     Indication: Coronary artery insufficiency
     Dosage: 1 DOSAGE FORM, BID (2 TO 3 YEARS AGO)
     Route: 065
  8. LANOXIN [Concomitant]
     Active Substance: DIGOXIN
     Indication: Atrial fibrillation
     Dosage: UNK, QD (2 YEAR AGO) (1/4 TO 1/2)
     Route: 065
  9. ATOREZA [Concomitant]
     Indication: Blood cholesterol
     Dosage: 1 DOSAGE FORM, QD (3 TO 4 YEARS AGO)
     Route: 065
  10. FEBUXOSTAT [Concomitant]
     Active Substance: FEBUXOSTAT
     Indication: Blood uric acid
     Dosage: 1 DOSAGE FORM, QD (5 YEARS AGO)
     Route: 065
  11. TEGRETOL [Concomitant]
     Active Substance: CARBAMAZEPINE
     Indication: Neuralgia
     Dosage: 1 DOSAGE FORM, QD (2 YEARS AGO)
     Route: 065

REACTIONS (3)
  - Hypokinesia [Recovering/Resolving]
  - Hypotension [Recovered/Resolved]
  - Blood pressure systolic increased [Unknown]

NARRATIVE: CASE EVENT DATE: 20230829
